FAERS Safety Report 13529067 (Version 1)
Quarter: 2017Q2

REPORT INFORMATION
  Report Type: Spontaneous
  Country: US (occurrence: US)
  Receive Date: 20170509
  Receipt Date: 20170509
  Transmission Date: 20170830
  Serious: No
  Sender: FDA-Public Use
  Company Number: US-ROCHE-GNE286196

PATIENT
  Age: 18 Year
  Sex: Female
  Weight: 110.12 kg

DRUGS (1)
  1. XOLAIR [Suspect]
     Active Substance: OMALIZUMAB
     Indication: ASTHMA
     Dosage: 375 MG, Q2W
     Route: 058
     Dates: start: 200906, end: 20090630

REACTIONS (2)
  - Fatigue [None]
  - Headache [Recovering/Resolving]

NARRATIVE: CASE EVENT DATE: 20090629
